FAERS Safety Report 5163729-6 (Version None)
Quarter: 2006Q4

REPORT INFORMATION
  Report Type: 
  Country: None (occurrence: None)
  Receive Date: 20061204
  Receipt Date: 20061201
  Transmission Date: 20070319
  Serious: Yes (Hospitalization)
  Sender: FDA-Public Use
  Company Number: FR-GLAXOSMITHKLINE-B0448933A

PATIENT
  Age: 73 Year
  Sex: Male

DRUGS (3)
  1. CLAMOXYL IV [Suspect]
     Indication: POSTOPERATIVE WOUND INFECTION
     Dosage: 4G THREE TIMES PER DAY
     Route: 042
     Dates: start: 20061018, end: 20061030
  2. CLAMOXYL [Suspect]
     Indication: POSTOPERATIVE WOUND INFECTION
     Dosage: 3G PER DAY
     Route: 048
     Dates: start: 20061030, end: 20061103
  3. RIFADIN [Suspect]
     Indication: POSTOPERATIVE WOUND INFECTION
     Dosage: 1.2G PER DAY
     Route: 042
     Dates: start: 20061025, end: 20061103

REACTIONS (3)
  - BLOOD ALKALINE PHOSPHATASE INCREASED [None]
  - CHOLESTASIS [None]
  - HYPERBILIRUBINAEMIA [None]
